FAERS Safety Report 21945540 (Version 1)
Quarter: 2023Q1

REPORT INFORMATION
  Report Type: Spontaneous
  Country: FR (occurrence: FR)
  Receive Date: 20230202
  Receipt Date: 20230202
  Transmission Date: 20230418
  Serious: Yes (Hospitalization, Other)
  Sender: FDA-Public Use
  Company Number: FR-INCYTE CORPORATION-2023IN000873

PATIENT
  Age: 50 Year
  Sex: Female

DRUGS (3)
  1. ICLUSIG [Suspect]
     Active Substance: PONATINIB
     Indication: Chronic myeloid leukaemia
     Dosage: 30 MILLIGRAM, QD
     Route: 065
  2. ICLUSIG [Suspect]
     Active Substance: PONATINIB
     Dosage: 15 MILLIGRAM, QD
     Route: 065
  3. DASATINIB [Concomitant]
     Active Substance: DASATINIB
     Indication: Product used for unknown indication
     Dosage: 140 MILLIGRAM, QD
     Route: 065
     Dates: start: 20170530

REACTIONS (9)
  - Arteriospasm coronary [Unknown]
  - Angina pectoris [Unknown]
  - Ill-defined disorder [Unknown]
  - Chest pain [Recovered/Resolved]
  - Malaise [Unknown]
  - Blood pressure increased [Unknown]
  - Dry skin [Recovered/Resolved]
  - Constipation [Recovered/Resolved]
  - Asthenia [Unknown]
